FAERS Safety Report 5590107-8 (Version None)
Quarter: 2008Q1

REPORT INFORMATION
  Report Type: 
  Country: None (occurrence: None)
  Receive Date: 20080114
  Receipt Date: 20070319
  Transmission Date: 20080703
  Serious: Yes (Hospitalization)
  Sender: FDA-Public Use
  Company Number: US-ABBOTT-07P-163-0360199-00

PATIENT
  Sex: Male
  Weight: 15.89 kg

DRUGS (4)
  1. OMNICEF [Suspect]
     Indication: BRONCHITIS
     Route: 048
     Dates: start: 20070205, end: 20070221
  2. OMNICEF [Suspect]
     Indication: SINUSITIS
  3. LEVOSALBUTAMOL [Concomitant]
     Indication: COUGH
     Dates: start: 20070219, end: 20070222
  4. MOMETASONE FUROATE [Concomitant]
     Indication: RESPIRATORY TRACT CONGESTION
     Dates: start: 20070219, end: 20070222

REACTIONS (3)
  - PURPURA [None]
  - PYREXIA [None]
  - URTICARIA [None]
